FAERS Safety Report 5284696-0 (Version None)
Quarter: 2007Q2

REPORT INFORMATION
  Report Type: 
  Country: None (occurrence: None)
  Receive Date: 20070403
  Receipt Date: 20070323
  Transmission Date: 20071010
  Serious: Yes (Hospitalization)
  Sender: FDA-Public Use
  Company Number: FR-ROCHE-489738

PATIENT
  Sex: Female

DRUGS (9)
  1. PEGASYS [Suspect]
     Indication: HEPATITIS C
     Route: 058
     Dates: start: 20061015
  2. PEGASYS [Suspect]
     Route: 058
  3. PEGASYS [Suspect]
     Route: 058
  4. COPEGUS [Suspect]
     Indication: HEPATITIS C
     Route: 048
     Dates: start: 20061015
  5. COPEGUS [Suspect]
     Dosage: DECREASED DOSAGE.
     Route: 048
  6. BACTRIM [Concomitant]
     Route: 048
  7. DEROXAT [Concomitant]
     Route: 048
  8. KALETRA [Concomitant]
     Route: 048
  9. TRUVADA [Concomitant]
     Route: 048

REACTIONS (1)
  - HISTIOCYTOSIS HAEMATOPHAGIC [None]
